FAERS Safety Report 4653284-9 (Version None)
Quarter: 2005Q2

REPORT INFORMATION
  Report Type: 
  Country: None (occurrence: None)
  Receive Date: 20050503
  Receipt Date: 20050422
  Transmission Date: 20051028
  Serious: Yes (Other)
  Sender: FDA-Public Use
  Company Number: 2005050924

PATIENT
  Age: 54 Year
  Sex: Male

DRUGS (9)
  1. LIPITOR [Suspect]
     Indication: HYPERLIPIDAEMIA
     Dosage: 10 MG (10 MG, 1 IN 1 D), ORAL
     Route: 048
     Dates: start: 20040224, end: 20050216
  2. BROMPERIDOL (BROMPERIDOL) [Suspect]
     Indication: ILL-DEFINED DISORDER
     Dosage: 3 MG (1 MG 3 IN 1 D), ORAL
     Route: 048
  3. BIPERIDEN HYDROCHLORIDE (BIPERIDEN HYDROCHORIDE) [Suspect]
     Indication: ILL-DEFINED DISORDER
     Dosage: 3 MG (1 MG, 3 IN 1 D),ORAL
     Route: 048
  4. ETIZOLAM (ETZOLAM) [Suspect]
     Indication: ILL-DEFINED DISORDER
     Dosage: 2 MG (1 MG, 2 IN 1 D), ORAL
     Route: 048
  5. FLUNITRAZEPAM (FLUNITRAEPAM) [Suspect]
     Indication: ILL-DEFINED DISORDER
     Dosage: 2 MG  (2 MG, 1 IN 1 D), ORAL
     Route: 048
  6. PENTOBARBITAL CALCIUM (PENTOBARBITAL CALCIUM) [Suspect]
     Indication: ILL-DEFINED DISORDER
     Dosage: 50 MG (50 MG, 1 IN 1 D), ORAL
     Route: 048
  7. CHLORPROMAZINE HCL [Concomitant]
  8. CARBAMAZEPINE [Concomitant]
  9. VALPROATE SODIUM [Concomitant]

REACTIONS (5)
  - BLOOD IMMUNOGLOBULIN A DECREASED [None]
  - BLOOD IMMUNOGLOBULIN G DECREASED [None]
  - BLOOD IMMUNOGLOBULIN M DECREASED [None]
  - HYPOGAMMAGLOBULINAEMIA [None]
  - IMMUNOGLOBULINS DECREASED [None]
